FAERS Safety Report 4908026-6 (Version None)
Quarter: 2006Q1

REPORT INFORMATION
  Report Type: 
  Country: None (occurrence: None)
  Receive Date: 20060210
  Receipt Date: 20060208
  Transmission Date: 20060701
  Serious: Yes (Other)
  Sender: FDA-Public Use
  Company Number: US-GLAXOSMITHKLINE-A0592821A

PATIENT
  Age: 45 Year
  Sex: Female

DRUGS (1)
  1. COMMIT [Suspect]
     Dosage: 2MG UNKNOWN
     Dates: start: 20060203, end: 20060204

REACTIONS (4)
  - ABDOMINAL DISTENSION [None]
  - ASTHMA [None]
  - DYSPNOEA [None]
  - NAUSEA [None]
